FAERS Safety Report 8119520-1 (Version None)
Quarter: 2012Q1

REPORT INFORMATION
  Report Type: 
  Country: None (occurrence: None)
  Receive Date: 20120203
  Receipt Date: 20120120
  Transmission Date: 20120608
  Serious: Yes (Other)
  Sender: FDA-Public Use
  Company Number: US-1190248

PATIENT
  Age: 1 Month

DRUGS (3)
  1. TOBREX [Suspect]
     Dosage: DAILY OPHTHALMIC
     Route: 047
  2. TOBRADEX [Suspect]
     Dosage: DAILY OPHTHALMIC
  3. HOMATROPINE HYDROBROMIDE [Concomitant]

REACTIONS (6)
  - CORNEAL THICKENING [None]
  - CORNEAL OPACITY [None]
  - DISEASE PROGRESSION [None]
  - CORNEAL OEDEMA [None]
  - WRONG DRUG ADMINISTERED [None]
  - CORNEAL GRAFT REJECTION [None]
